FAERS Safety Report 26047485 (Version 1)
Quarter: 2025Q4

REPORT INFORMATION
  Report Type: Spontaneous
  Country: US (occurrence: US)
  Receive Date: 20251114
  Receipt Date: 20251114
  Transmission Date: 20260118
  Serious: Yes (Other)
  Sender: PACIRA
  Company Number: US-ORG100016242-2025000458

PATIENT

DRUGS (10)
  1. EXPAREL [Suspect]
     Active Substance: BUPIVACAINE
     Indication: Nerve block
     Route: 050
  2. EXPAREL [Suspect]
     Active Substance: BUPIVACAINE
     Indication: Nerve block
     Route: 050
  3. BUPIVACAINE [Suspect]
     Active Substance: BUPIVACAINE
     Indication: Nerve block
     Route: 050
  4. BUPIVACAINE [Suspect]
     Active Substance: BUPIVACAINE
     Indication: Nerve block
     Route: 050
  5. SALINE [Suspect]
     Active Substance: SODIUM CHLORIDE
     Indication: Nerve block
     Route: 050
  6. SALINE [Suspect]
     Active Substance: SODIUM CHLORIDE
     Indication: Nerve block
     Route: 050
  7. LIDOCAINE [Suspect]
     Active Substance: LIDOCAINE
     Indication: Intraoperative care
     Dosage: 1 MG/KG/HR, PER IDEAL BODY WEIGHT
     Route: 050
  8. TYLENOL [Concomitant]
     Active Substance: ACETAMINOPHEN
     Indication: Anaesthesia procedure
     Route: 065
  9. GABAPENTIN [Concomitant]
     Active Substance: GABAPENTIN
     Indication: Anaesthesia procedure
     Dosage: 600MG OR 300 MG FOR PATIENTS }70 YEARS OLD
     Route: 065
  10. KETAMINE [Concomitant]
     Active Substance: KETAMINE
     Indication: Intraoperative care
     Dosage: HOURLY BOLUS OR DRIP (AVERAGE?OF 0.15-0.25 MG/KG/HR, PER IDEAL BODY WEIGHT)
     Route: 040

REACTIONS (8)
  - Acute kidney injury [Unknown]
  - Ileus [Unknown]
  - Respiratory depression [Unknown]
  - Mobility decreased [Unknown]
  - Procedural nausea [Unknown]
  - Hypotension [Unknown]
  - Sedation [Unknown]
  - Labelled drug-drug interaction medication error [Unknown]
